FAERS Safety Report 18922112 (Version 1)
Quarter: 2021Q1

REPORT INFORMATION
  Report Type: Spontaneous
  Country: US (occurrence: US)
  Receive Date: 20210220
  Receipt Date: 20210220
  Transmission Date: 20210420
  Serious: Yes (Death, Hospitalization)
  Sender: FDA-Public Use
  Company Number: None

PATIENT
  Age: 3 Year
  Sex: Male
  Weight: 14.9 kg

DRUGS (4)
  1. VINCRISTINE SULFATE. [Suspect]
     Active Substance: VINCRISTINE SULFATE
     Dates: end: 20210206
  2. DEXAMETHASONE. [Suspect]
     Active Substance: DEXAMETHASONE
     Dates: end: 20210210
  3. ONCASPAR [Suspect]
     Active Substance: PEGASPARGASE
     Dates: end: 20210206
  4. CYTARABINE. [Suspect]
     Active Substance: CYTARABINE
     Dates: end: 20210205

REACTIONS (5)
  - Negative pressure pulmonary oedema [None]
  - Cardiac arrest [None]
  - Sepsis [None]
  - Pyrexia [None]
  - Staphylococcal infection [None]

NARRATIVE: CASE EVENT DATE: 20210210
